FAERS Safety Report 6517905-8 (Version None)
Quarter: 2009Q4

REPORT INFORMATION
  Report Type: 
  Country: None (occurrence: None)
  Receive Date: 20091218
  Receipt Date: 20091203
  Transmission Date: 20100525
  Serious: Yes (Death, Other)
  Sender: FDA-Public Use
  Company Number: A-CH2009-30498

PATIENT
  Age: 49 Year
  Sex: Female
  Weight: 99 kg

DRUGS (16)
  1. TRACLEER [Suspect]
     Indication: PULMONARY ARTERIAL HYPERTENSION
     Dosage: 125 MG, ORAL; 62.5 MG, ORAL
     Route: 048
     Dates: start: 20070418, end: 20070515
  2. TRACLEER [Suspect]
     Indication: PULMONARY ARTERIAL HYPERTENSION
     Dosage: 125 MG, ORAL; 62.5 MG, ORAL
     Route: 048
     Dates: start: 20070516, end: 20091110
  3. BUMETANIDE [Concomitant]
  4. CHLOORTALIDON (CHLORTALIDONE) [Concomitant]
  5. SPIRONOLACTONE [Concomitant]
  6. SLIFENAFIL [Concomitant]
  7. FENPROCOUMON RATIOPHAM (PHENPROCOUMON) [Concomitant]
  8. ALLOPURINOL [Concomitant]
  9. OMEPRAZOL (OMEPRAZOL) [Concomitant]
  10. CETRIZINE (CETIRIZINE HYDRCHOLORIDE) [Concomitant]
  11. HYDROXYZINE [Concomitant]
  12. ESCITALOPRAM [Concomitant]
  13. GABAPENTIN (GAVAPENTIN) [Concomitant]
  14. TRAMADOL HCL [Concomitant]
  15. PARCETAMOL (PARACETAMOL) [Concomitant]
  16. AMIODARONE HCL [Concomitant]

REACTIONS (6)
  - CARDIAC FAILURE [None]
  - DERMATITIS [None]
  - ERYSIPELAS [None]
  - RENAL FAILURE [None]
  - RIGHT VENTRICULAR FAILURE [None]
  - SUDDEN DEATH [None]
